FAERS Safety Report 8800919 (Version 1)
Quarter: 2012Q4

REPORT INFORMATION
  Report Type: Report from Study
  Country: DE (occurrence: DE)
  Receive Date: 20120921
  Receipt Date: 20120921
  Transmission Date: 20130627
  Serious: Yes (Death, Hospitalization)
  Sender: FDA-Public Use
  Company Number: DE-ASTELLAS-2012US007975

PATIENT
  Sex: Male
  Weight: 79 kg

DRUGS (1)
  1. ERLOTINIB TABLET [Suspect]
     Indication: BRONCHIAL CARCINOMA
     Dosage: 150 mg, Unknown/D
     Route: 048
     Dates: start: 20120704

REACTIONS (1)
  - Sepsis [Fatal]
